FAERS Safety Report 12124990 (Version 2)
Quarter: 2018Q4

REPORT INFORMATION
  Report Type: Report from Study
  Country: US (occurrence: US)
  Receive Date: 20160229
  Receipt Date: 20181219
  Transmission Date: 20190204
  Serious: Yes (Other)
  Sender: FDA-Public Use
  Company Number: US-AMGEN-USASL2016023986

PATIENT
  Age: 45 Year
  Sex: Female

DRUGS (2)
  1. ENBREL [Suspect]
     Active Substance: ETANERCEPT
     Indication: PSORIASIS
     Dosage: 50 MG, 2 TIMES/WK
     Route: 065
     Dates: start: 2007
  2. ENBREL [Suspect]
     Active Substance: ETANERCEPT
     Indication: PSORIATIC ARTHROPATHY

REACTIONS (13)
  - Psoriatic arthropathy [Unknown]
  - Hyperhidrosis [Unknown]
  - Psoriasis [Unknown]
  - Injection site urticaria [Unknown]
  - Tuberculosis [Unknown]
  - Joint injury [Unknown]
  - Joint range of motion decreased [Unknown]
  - Agoraphobia [Unknown]
  - Injection site pruritus [Unknown]
  - Knee operation [Unknown]
  - Joint swelling [Unknown]
  - Abortion spontaneous [Recovered/Resolved]
  - Injection site mass [Unknown]

NARRATIVE: CASE EVENT DATE: 2017
